FAERS Safety Report 7060169-X (Version None)
Quarter: 2010Q4

REPORT INFORMATION
  Report Type: 
  Country: None (occurrence: None)
  Receive Date: 20101025
  Receipt Date: 20101019
  Transmission Date: 20110411
  Serious: Yes (Death)
  Sender: FDA-Public Use
  Company Number: PHHO2010IT15678

PATIENT
  Sex: Female
  Weight: 38 kg

DRUGS (1)
  1. AFINITOR [Suspect]
     Indication: PANCREATIC NEUROENDOCRINE TUMOUR
     Dosage: 10 MG
     Dates: start: 20100730

REACTIONS (2)
  - CARDIAC ARREST [None]
  - MALIGNANT NEOPLASM PROGRESSION [None]
